FAERS Safety Report 24292122 (Version 1)
Quarter: 2024Q3

REPORT INFORMATION
  Report Type: Spontaneous
  Country: US (occurrence: None)
  Receive Date: 20240906
  Receipt Date: 20240906
  Transmission Date: 20241017
  Serious: No
  Sender: DOMPE FARMACEUTICI
  Company Number: US-FARMAPROD-202307-2148

PATIENT
  Age: 33 Year
  Sex: Female

DRUGS (21)
  1. OXERVATE [Suspect]
     Active Substance: CENEGERMIN-BKBJ
     Indication: Neurotrophic keratopathy
     Route: 047
     Dates: start: 20230710, end: 20230904
  2. OXERVATE [Suspect]
     Active Substance: CENEGERMIN-BKBJ
     Route: 047
     Dates: start: 20231019, end: 20231214
  3. OXERVATE [Suspect]
     Active Substance: CENEGERMIN-BKBJ
     Route: 047
     Dates: start: 20240312
  4. OXERVATE [Suspect]
     Active Substance: CENEGERMIN-BKBJ
  5. METHYLPHENIDATE [Concomitant]
     Active Substance: METHYLPHENIDATE
  6. FISH OIL [Concomitant]
     Active Substance: FISH OIL
  7. LEVOMEFOLIC ACID [Concomitant]
     Active Substance: LEVOMEFOLIC ACID
  8. GABAPENTIN [Concomitant]
     Active Substance: GABAPENTIN
  9. GLUTATHIONE REDUCED [Concomitant]
  10. AMBIEN [Concomitant]
     Active Substance: ZOLPIDEM TARTRATE
  11. HYALURONIC ACID VITAMIN C [Concomitant]
  12. TRINTELLIX [Concomitant]
     Active Substance: VORTIOXETINE HYDROBROMIDE
  13. PALIPERIDONE [Concomitant]
     Active Substance: PALIPERIDONE
     Dosage: 24H
  14. PILOCARPINE HYDROCHLORIDE [Concomitant]
     Active Substance: PILOCARPINE HYDROCHLORIDE
  15. PROBIOTICS NOS [Concomitant]
     Active Substance: PROBIOTICS NOS
  16. ARMODAFINIL [Concomitant]
     Active Substance: ARMODAFINIL
  17. CHLORDIAZEPOXIDE HYDROCHLORIDE [Concomitant]
     Active Substance: CHLORDIAZEPOXIDE HYDROCHLORIDE
  18. HERBALS\HONEY [Concomitant]
     Active Substance: HERBALS\HONEY
  19. PATADAY [Concomitant]
     Active Substance: OLOPATADINE HYDROCHLORIDE
  20. LOTEMAX [Concomitant]
     Active Substance: LOTEPREDNOL ETABONATE
  21. DOXYCYCLINE HYCLATE [Concomitant]
     Active Substance: DOXYCYCLINE HYCLATE

REACTIONS (10)
  - Hypoaesthesia [Unknown]
  - Paraesthesia [Unknown]
  - Muscle twitching [Unknown]
  - Feeling cold [Unknown]
  - Erythema of eyelid [Unknown]
  - Eyelid irritation [Unknown]
  - Eye pain [Not Recovered/Not Resolved]
  - Eye irritation [Unknown]
  - Eye swelling [Unknown]
  - Therapy partial responder [Unknown]

NARRATIVE: CASE EVENT DATE: 20230716
